FAERS Safety Report 6193408-8 (Version None)
Quarter: 2009Q2

REPORT INFORMATION
  Report Type: 
  Country: None (occurrence: None)
  Receive Date: 20090518
  Receipt Date: 20090121
  Transmission Date: 20091009
  Serious: No
  Sender: FDA-Public Use
  Company Number: US-ABBOTT-05P-163-0409218-00

PATIENT
  Sex: Male
  Weight: 70.37 kg

DRUGS (13)
  1. AZMACORT [Suspect]
     Indication: ASTHMA
     Route: 050
     Dates: start: 20050405, end: 20050601
  2. FLONASE [Concomitant]
     Indication: ASTHMA
  3. PREVACID [Concomitant]
     Indication: GASTROOESOPHAGEAL REFLUX DISEASE
  4. LIPITOR [Concomitant]
     Indication: BLOOD TRIGLYCERIDES
  5. UNKNOWN ANTI-DEPRESSION MEDICATION [Concomitant]
     Indication: DEPRESSION
  6. UNKNOWN ANTI-ANXIETY MEDICATION [Concomitant]
     Indication: ANXIETY
  7. MULTI-VITAMIN [Concomitant]
     Indication: SUPPLEMENTATION THERAPY
  8. SINGULAIR [Concomitant]
     Indication: DRUG USE FOR UNKNOWN INDICATION
  9. PROVENTIL [Concomitant]
     Indication: DRUG USE FOR UNKNOWN INDICATION
  10. ALLEGRA [Concomitant]
     Indication: DRUG USE FOR UNKNOWN INDICATION
  11. LEXAPRO [Concomitant]
     Indication: DRUG USE FOR UNKNOWN INDICATION
  12. SEROQUEL [Concomitant]
     Indication: DRUG USE FOR UNKNOWN INDICATION
  13. XANAX [Concomitant]
     Indication: DRUG USE FOR UNKNOWN INDICATION

REACTIONS (5)
  - COUGH [None]
  - HYPERSENSITIVITY [None]
  - PRURITUS [None]
  - RASH [None]
  - SWELLING [None]
